FAERS Safety Report 13703705 (Version 4)
Quarter: 2017Q3

REPORT INFORMATION
  Report Type: Spontaneous
  Country: US (occurrence: US)
  Receive Date: 20170629
  Receipt Date: 20170802
  Transmission Date: 20171127
  Serious: Yes (Hospitalization)
  Sender: FDA-Public Use
  Company Number: US-EXELIXIS-CABO-17009536

PATIENT
  Age: 59 Year
  Sex: Male

DRUGS (7)
  1. CABOMETYX [Suspect]
     Active Substance: CABOZANTINIB S-MALATE
     Indication: RENAL CELL CARCINOMA
     Dosage: 60 MG, QD
     Route: 048
     Dates: start: 20170303, end: 20170614
  2. INVESTIGATIONAL DRUG [Suspect]
     Active Substance: INVESTIGATIONAL PRODUCT
     Indication: RENAL CELL CARCINOMA
     Dosage: UNK
  3. LOVENOX [Concomitant]
     Active Substance: ENOXAPARIN SODIUM
  4. MORPHINE [Suspect]
     Active Substance: MORPHINE
     Indication: PAIN
  5. SINGULAIR [Concomitant]
     Active Substance: MONTELUKAST SODIUM
  6. TESSALON [Concomitant]
     Active Substance: BENZONATATE
  7. REGLAN [Concomitant]
     Active Substance: METOCLOPRAMIDE HYDROCHLORIDE

REACTIONS (11)
  - Insomnia [Unknown]
  - Agitation [Unknown]
  - Fatigue [Unknown]
  - Weight decreased [Unknown]
  - Tumour necrosis [Not Recovered/Not Resolved]
  - Decreased appetite [Unknown]
  - Cough [Unknown]
  - Urinary tract infection [Unknown]
  - Hallucination [Recovered/Resolved]
  - Pain [Recovering/Resolving]
  - Discomfort [Unknown]

NARRATIVE: CASE EVENT DATE: 201706
